FAERS Safety Report 4597071-9 (Version None)
Quarter: 2005Q1

REPORT INFORMATION
  Report Type: 
  Country: None (occurrence: None)
  Receive Date: 20050301
  Receipt Date: 20050218
  Transmission Date: 20050727
  Serious: Yes (Other)
  Sender: FDA-Public Use
  Company Number: 2005034903

PATIENT
  Sex: Male

DRUGS (1)
  1. SULPERAZON (SULBACTAM, CEFOPERAZONE) [Suspect]
     Indication: LUNG INFECTION
     Dosage: INTRAVENOUS
     Route: 042
     Dates: start: 20050211, end: 20050211

REACTIONS (8)
  - BREATH SOUNDS DECREASED [None]
  - CHOKING SENSATION [None]
  - CYANOSIS [None]
  - DYSPNOEA [None]
  - HEART RATE INCREASED [None]
  - HYPERHIDROSIS [None]
  - HYPERSENSITIVITY [None]
  - WHEEZING [None]
